FAERS Safety Report 4673639-6 (Version None)
Quarter: 2005Q2

REPORT INFORMATION
  Report Type: 
  Country: None (occurrence: None)
  Receive Date: 20050525
  Receipt Date: 20050110
  Transmission Date: 20051028
  Serious: Yes (Hospitalization)
  Sender: FDA-Public Use
  Company Number: 2005PK00073

PATIENT
  Age: 53 Year
  Sex: Male

DRUGS (7)
  1. SEROQUEL [Suspect]
     Route: 048
     Dates: start: 20041008
  2. TEGRETOL [Interacting]
     Route: 048
     Dates: start: 20041007, end: 20041018
  3. TEGRETOL [Interacting]
     Route: 048
     Dates: start: 20041019, end: 20041021
  4. QUILONORM [Suspect]
     Route: 048
     Dates: start: 20020101, end: 20041007
  5. QUILONORM [Suspect]
     Route: 048
     Dates: start: 20041008, end: 20041011
  6. QUILONORM [Suspect]
     Route: 048
     Dates: start: 20041012
  7. FLOXYFRAL [Interacting]
     Route: 048
     Dates: start: 20020101

REACTIONS (5)
  - COORDINATION ABNORMAL [None]
  - DRUG INTERACTION [None]
  - DRUG LEVEL INCREASED [None]
  - GAIT DISTURBANCE [None]
  - VERTIGO [None]
